FAERS Safety Report 7647785-9 (Version None)
Quarter: 2011Q3

REPORT INFORMATION
  Report Type: 
  Country: None (occurrence: None)
  Receive Date: 20110801
  Receipt Date: 20110722
  Transmission Date: 20111222
  Serious: Yes (Hospitalization, Other)
  Sender: FDA-Public Use
  Company Number: AU-JNJFOC-20110709199

PATIENT
  Sex: Male

DRUGS (1)
  1. INVEGA SUSTENNA [Suspect]
     Indication: SCHIZOPHRENIA
     Dosage: 100MG /4 /52
     Route: 030

REACTIONS (5)
  - PHYSICAL PRODUCT LABEL ISSUE [None]
  - SUBSTANCE ABUSE [None]
  - SUICIDAL IDEATION [None]
  - SCHIZOPHRENIA [None]
  - SYRINGE ISSUE [None]
